FAERS Safety Report 18694645 (Version 1)
Quarter: 2020Q4

REPORT INFORMATION
  Report Type: Spontaneous
  Country: US (occurrence: US)
  Receive Date: 20201231
  Receipt Date: 20201231
  Transmission Date: 20210114
  Serious: No
  Sender: FDA-Public Use
  Company Number: None

PATIENT
  Age: 72 Year
  Sex: Male
  Weight: 138.8 kg

DRUGS (3)
  1. XELODA [Suspect]
     Active Substance: CAPECITABINE
  2. XELODA [Suspect]
     Active Substance: CAPECITABINE
  3. CAPECITABINE 500MG [Concomitant]
     Active Substance: CAPECITABINE

REACTIONS (3)
  - Rash [None]
  - Rash erythematous [None]
  - Rash pruritic [None]

NARRATIVE: CASE EVENT DATE: 20201222
